FAERS Safety Report 9557290 (Version 4)
Quarter: 2015Q4

REPORT INFORMATION
  Report Type: Spontaneous
  Country: US (occurrence: US)
  Receive Date: 20130926
  Receipt Date: 20151109
  Transmission Date: 20160305
  Serious: Yes (Death, Hospitalization, Disabling, Other)
  Sender: FDA-Public Use
  Company Number: US-009507513-1309USA012820

PATIENT
  Sex: Male
  Weight: 120.18 kg

DRUGS (2)
  1. LISINOPRIL. [Concomitant]
     Active Substance: LISINOPRIL
     Dosage: UNK
     Dates: start: 2005, end: 2007
  2. JANUVIA [Suspect]
     Active Substance: SITAGLIPTIN PHOSPHATE
     Indication: TYPE 2 DIABETES MELLITUS
     Dosage: 100 MG, QD
     Route: 048
     Dates: start: 20070216, end: 200710

REACTIONS (38)
  - Adenocarcinoma pancreas [Fatal]
  - Pleural effusion [Unknown]
  - Knee operation [Unknown]
  - Nephrolithiasis [Unknown]
  - Liver disorder [Unknown]
  - Ascites [Unknown]
  - Hyperkalaemia [Unknown]
  - Cardiomegaly [Unknown]
  - Hypercholesterolaemia [Unknown]
  - Atrial fibrillation [Unknown]
  - Cellulitis [Unknown]
  - Hypertension [Unknown]
  - Clostridium difficile colitis [Unknown]
  - Weight decreased [Unknown]
  - Gastrointestinal haemorrhage [Unknown]
  - Gait disturbance [Unknown]
  - Hypertensive nephropathy [Unknown]
  - Pancreatic enlargement [Unknown]
  - Malignant ascites [Unknown]
  - Acute kidney injury [Unknown]
  - Pancreatitis [Unknown]
  - Shoulder operation [Unknown]
  - Hepatic cirrhosis [Unknown]
  - Intestinal adenocarcinoma [Unknown]
  - Cardiac arrest [Unknown]
  - Sepsis [Unknown]
  - Chronic kidney disease [Not Recovered/Not Resolved]
  - Cholelithiasis [Recovered/Resolved]
  - Hepatosplenomegaly [Unknown]
  - Dyspnoea [Unknown]
  - Carbohydrate antigen 19-9 increased [Unknown]
  - Iron deficiency anaemia [Unknown]
  - Diaphragmatic hernia [Unknown]
  - Pneumonia [Unknown]
  - Acidosis [Unknown]
  - Lymphadenopathy [Unknown]
  - Hypovolaemia [Unknown]
  - Coronary artery disease [Unknown]

NARRATIVE: CASE EVENT DATE: 200707
